FAERS Safety Report 6821191-9 (Version None)
Quarter: 2010Q2

REPORT INFORMATION
  Report Type: 
  Country: None (occurrence: None)
  Receive Date: 20100630
  Receipt Date: 20100617
  Transmission Date: 20101027
  Serious: Yes (Other)
  Sender: FDA-Public Use
  Company Number: TRP_07049_2010

PATIENT
  Age: 36 Year
  Sex: Female

DRUGS (3)
  1. RIBAVIRIN [Suspect]
     Indication: HEPATITIS C
     Dosage: (800 MG, DAILY)
     Dates: start: 20030101, end: 20040101
  2. PEGINTERFERON ALFA-2B [Suspect]
     Indication: HEPATITIS C
     Dosage: (80 ?G 1X/WEEK SUBCUTANEOUS), (50 ?G 1X/WEEK SUBCUTANEOUS)
     Route: 058
     Dates: start: 20030101, end: 20030101
  3. PEGINTERFERON ALFA-2B [Suspect]
     Indication: HEPATITIS C
     Dosage: (80 ?G 1X/WEEK SUBCUTANEOUS), (50 ?G 1X/WEEK SUBCUTANEOUS)
     Route: 058
     Dates: start: 20030101, end: 20040101

REACTIONS (4)
  - ALOPECIA UNIVERSALIS [None]
  - DEPRESSION [None]
  - NEUTROPENIA [None]
  - SERUM FERRITIN DECREASED [None]
